FAERS Safety Report 12395963 (Version 1)
Quarter: 2016Q2

REPORT INFORMATION
  Report Type: Spontaneous
  Country: JP (occurrence: JP)
  Receive Date: 20160523
  Receipt Date: 20160523
  Transmission Date: 20160815
  Serious: Yes (Hospitalization)
  Sender: FDA-Public Use
  Company Number: JP-DSJP-DSJ-2016-110581

PATIENT

DRUGS (10)
  1. LIXIANA TABLETS [Suspect]
     Active Substance: EDOXABAN TOSILATE MONOHYDRATE
     Dosage: 30 MG, QD
     Route: 048
     Dates: start: 20150313
  2. EPADEL                             /01682401/ [Suspect]
     Active Substance: ICOSAPENT
     Indication: PRODUCT USED FOR UNKNOWN INDICATION
     Dosage: 900 MG, BID
     Route: 048
     Dates: end: 20150305
  3. LIXIANA TABLETS [Suspect]
     Active Substance: EDOXABAN TOSILATE MONOHYDRATE
     Indication: ATRIAL FIBRILLATION
     Dosage: 30 MG, QD
     Route: 048
     Dates: start: 20150204, end: 20150305
  4. OMNIPAQUE (FOR INTRAURETHRAL, INTRAVASCULAR AND CT USE) [Concomitant]
     Indication: INVESTIGATION
     Dosage: UNK
     Route: 042
     Dates: start: 20150306, end: 20150306
  5. XYLOCAINE [Concomitant]
     Active Substance: LIDOCAINE HYDROCHLORIDE
     Indication: GASTRITIS PROPHYLAXIS
  6. HEPARIN [Concomitant]
     Active Substance: HEPARIN SODIUM
     Indication: SURGERY
     Dosage: UNK
     Route: 042
     Dates: start: 20150306, end: 20150306
  7. RABEPRAZOLE [Concomitant]
     Active Substance: RABEPRAZOLE
     Dosage: 10 MG, QD
     Route: 048
     Dates: start: 20150204
  8. PRECEDEX [Concomitant]
     Active Substance: DEXMEDETOMIDINE HYDROCHLORIDE
     Indication: ANAESTHESIA PROCEDURE
     Dosage: UNK
     Route: 042
     Dates: start: 20150306, end: 20150306
  9. XYLOCAINE [Concomitant]
     Active Substance: LIDOCAINE HYDROCHLORIDE
     Indication: ANAESTHESIA PROCEDURE
     Dosage: UNK
     Route: 061
     Dates: start: 20150306, end: 20150306
  10. RAVONAL [Concomitant]
     Active Substance: THIOPENTAL
     Indication: ANAESTHESIA PROCEDURE
     Dosage: UNK
     Route: 042
     Dates: start: 20150306, end: 20150306

REACTIONS (1)
  - Cardiac tamponade [Recovered/Resolved]

NARRATIVE: CASE EVENT DATE: 20150306
